FAERS Safety Report 11232000 (Version 3)
Quarter: 2015Q3

REPORT INFORMATION
  Report Type: Report from Study
  Country: BE (occurrence: BE)
  Receive Date: 20150701
  Receipt Date: 20150708
  Transmission Date: 20151125
  Serious: Yes (Death, Hospitalization, Disabling)
  Sender: FDA-Public Use
  Company Number: PHHO2013BE001444

PATIENT
  Age: 65 Year
  Sex: Male
  Weight: 61.18 kg

DRUGS (4)
  1. PREDNISOLON [Concomitant]
     Active Substance: PREDNISOLONE
     Dosage: 5 MG, QD
     Route: 048
     Dates: start: 20121226
  2. PREDNISOLON [Concomitant]
     Active Substance: PREDNISOLONE
     Indication: RENAL TRANSPLANT
     Dosage: 5 MG, QD
     Route: 048
     Dates: start: 20121021
  3. EVEROLIMUS [Suspect]
     Active Substance: EVEROLIMUS
     Indication: RENAL TRANSPLANT
     Dosage: 0.25 MG, BID
     Route: 048
     Dates: start: 20120720
  4. NEGABAN [Suspect]
     Active Substance: TEMOCILLIN
     Indication: PRODUCT USED FOR UNKNOWN INDICATION
     Dosage: UNK
     Route: 065

REACTIONS (7)
  - Brain neoplasm [Fatal]
  - Hemiplegia [Fatal]
  - Central nervous system lymphoma [Fatal]
  - Urinary tract infection [Not Recovered/Not Resolved]
  - Euthanasia [Fatal]
  - Epstein-Barr virus infection [Fatal]
  - Hypersensitivity [Not Recovered/Not Resolved]

NARRATIVE: CASE EVENT DATE: 20120730
